FAERS Safety Report 8609304 (Version 4)
Quarter: 2018Q2

REPORT INFORMATION
  Report Type: Spontaneous
  Country: US (occurrence: US)
  Receive Date: 20120611
  Receipt Date: 20180411
  Transmission Date: 20180711
  Serious: No
  Sender: FDA-Public Use
  Company Number: US-ASTRAZENECA-2012SE22368

PATIENT
  Age: 27 Year
  Sex: Male
  Weight: 90.7 kg

DRUGS (4)
  1. ZEGERID [Concomitant]
     Active Substance: OMEPRAZOLE\SODIUM BICARBONATE
     Indication: DYSPEPSIA
     Dosage: 40 MG
     Route: 048
     Dates: start: 2004, end: 2011
  2. OMEPRAZOLE. [Suspect]
     Active Substance: OMEPRAZOLE
     Indication: DYSPEPSIA
     Route: 048
     Dates: start: 2011
  3. SYMBICORT [Suspect]
     Active Substance: BUDESONIDE\FORMOTEROL FUMARATE DIHYDRATE
     Indication: EOSINOPHILIC OESOPHAGITIS
     Dosage: DAILY
     Route: 055
     Dates: start: 2009, end: 2009
  4. NEXIUM [Suspect]
     Active Substance: ESOMEPRAZOLE MAGNESIUM
     Dosage: UNKNOWN
     Route: 065

REACTIONS (9)
  - Constipation [Unknown]
  - Oesophageal oedema [Unknown]
  - Musculoskeletal stiffness [Not Recovered/Not Resolved]
  - Dyspepsia [Not Recovered/Not Resolved]
  - Dry mouth [Unknown]
  - Oesophageal disorder [Unknown]
  - Skin sensitisation [Unknown]
  - Diarrhoea [Unknown]
  - Pharyngeal oedema [Unknown]
